FAERS Safety Report 5427021-4 (Version None)
Quarter: 2007Q3

REPORT INFORMATION
  Report Type: 
  Country: None (occurrence: None)
  Receive Date: 20070731
  Receipt Date: 20070502
  Transmission Date: 20080115
  Serious: No
  Sender: FDA-Public Use
  Company Number: US200705000706

PATIENT
  Age: 67 Year
  Sex: Female

DRUGS (14)
  1. BYETTA [Suspect]
     Indication: TYPE 2 DIABETES MELLITUS
     Dosage: 5 UG, 2/D, SUBCUTANEOUS
     Route: 058
     Dates: start: 20070201, end: 20070430
  2. LANTUS [Concomitant]
  3. GLIPIZIDE [Concomitant]
  4. METFORMIN HCL [Concomitant]
  5. ACIPHEX [Concomitant]
  6. ZOCOR [Concomitant]
  7. NIASPAN [Concomitant]
  8. LISINOPRIL [Concomitant]
  9. LOTREL [Concomitant]
  10. ASPIRIN [Concomitant]
  11. ALBUTEROL [Concomitant]
  12. FOLIC ACID [Concomitant]
  13. GLUCOSAMINE [Concomitant]
  14. CHONDROITIN [Concomitant]

REACTIONS (11)
  - ABDOMINAL DISTENSION [None]
  - BLOOD GLUCOSE DECREASED [None]
  - CONSTIPATION [None]
  - COUGH [None]
  - DIZZINESS [None]
  - DYSPNOEA [None]
  - HEADACHE [None]
  - MUSCLE SPASMS [None]
  - MUSCULOSKELETAL PAIN [None]
  - TENDERNESS [None]
  - TREMOR [None]
